FAERS Safety Report 10339489 (Version 1)
Quarter: 2014Q3

REPORT INFORMATION
  Report Type: Spontaneous
  Country: CN (occurrence: CN)
  Receive Date: 20140724
  Receipt Date: 20140724
  Transmission Date: 20150326
  Serious: Yes (Other)
  Sender: FDA-Public Use
  Company Number: CN-BRACCO-001129

PATIENT
  Age: 76 Year
  Sex: Female
  Weight: 70 kg

DRUGS (1)
  1. IOPAMIRO [Suspect]
     Active Substance: IOPAMIDOL
     Indication: ANGIOGRAM
     Dates: start: 20130502, end: 20130502

REACTIONS (1)
  - Neurological symptom [Recovering/Resolving]

NARRATIVE: CASE EVENT DATE: 20130502
